FAERS Safety Report 7456991-8 (Version None)
Quarter: 2011Q2

REPORT INFORMATION
  Report Type: 
  Country: None (occurrence: None)
  Receive Date: 20110504
  Receipt Date: 20110421
  Transmission Date: 20111010
  Serious: Yes (Hospitalization)
  Sender: FDA-Public Use
  Company Number: CA-MEDIMMUNE-MEDI-0012715

PATIENT
  Age: 30 Day
  Sex: Female
  Weight: 3.18 kg

DRUGS (1)
  1. SYNAGIS [Suspect]
     Route: 030
     Dates: start: 20090101, end: 20090101

REACTIONS (5)
  - COUGH [None]
  - HYPOPHAGIA [None]
  - DIARRHOEA [None]
  - DEHYDRATION [None]
  - NASAL CONGESTION [None]
